FAERS Safety Report 4553061-3 (Version None)
Quarter: 2005Q1

REPORT INFORMATION
  Report Type: 
  Country: None (occurrence: None)
  Receive Date: 20050114
  Receipt Date: 20040826
  Transmission Date: 20050727
  Serious: Yes (Other)
  Sender: FDA-Public Use
  Company Number: PHEH2004US09291

PATIENT
  Age: 45 Year
  Sex: Female

DRUGS (1)
  1. ZOMETA [Suspect]
     Dosage: UNK/UNK

REACTIONS (3)
  - ACTINOMYCOSIS [None]
  - WOUND DEBRIDEMENT [None]
  - WOUND DRAINAGE [None]
